FAERS Safety Report 6601534-1 (Version None)
Quarter: 2010Q1

REPORT INFORMATION
  Report Type: 
  Country: None (occurrence: None)
  Receive Date: 20100225
  Receipt Date: 20100223
  Transmission Date: 20100710
  Serious: Yes (Other)
  Sender: FDA-Public Use
  Company Number: BE-TEVA-224822ISR

PATIENT
  Age: 44 Year
  Sex: Male

DRUGS (1)
  1. MORPHINE [Suspect]
     Route: 042

REACTIONS (2)
  - DRUG ABUSE [None]
  - ISCHAEMIA [None]
